FAERS Safety Report 6449081-4 (Version None)
Quarter: 2009Q4

REPORT INFORMATION
  Report Type: 
  Country: None (occurrence: None)
  Receive Date: 20091120
  Receipt Date: 20091117
  Transmission Date: 20100525
  Serious: Yes (Death)
  Sender: FDA-Public Use
  Company Number: JP-JNJFOC-20090101559

PATIENT
  Sex: Female
  Weight: 65 kg

DRUGS (2)
  1. LEUSTATIN [Suspect]
     Indication: B-CELL LYMPHOMA
     Route: 041
     Dates: start: 20060527, end: 20060529
  2. NOVANTRONE [Concomitant]
     Indication: B-CELL LYMPHOMA
     Route: 041

REACTIONS (5)
  - B-CELL LYMPHOMA [None]
  - DYSPNOEA [None]
  - LOCAL SWELLING [None]
  - PLATELET COUNT DECREASED [None]
  - WHITE BLOOD CELL COUNT DECREASED [None]
